FAERS Safety Report 7297279-8 (Version None)
Quarter: 2011Q1

REPORT INFORMATION
  Report Type: 
  Country: None (occurrence: None)
  Receive Date: 20110216
  Receipt Date: 20110208
  Transmission Date: 20110831
  Serious: Yes (Hospitalization)
  Sender: FDA-Public Use
  Company Number: PHHO2011GB02340

PATIENT
  Sex: Male
  Weight: 74 kg

DRUGS (7)
  1. DOCETAXEL [Suspect]
     Indication: SQUAMOUS CELL CARCINOMA
     Dosage: 60 MG/M2, UNK
     Route: 048
     Dates: start: 20101207, end: 20110120
  2. BENDROFLUMETHIAZIDE [Concomitant]
     Indication: ESSENTIAL HYPERTENSION
  3. PRAVASTATIN [Concomitant]
     Indication: HYPERCHOLESTEROLAEMIA
  4. CODEINE [Concomitant]
     Indication: PAIN
  5. TINZAPARIN [Concomitant]
  6. PARACETAMOL [Concomitant]
     Indication: PAIN
  7. AFINITOR [Suspect]
     Indication: SQUAMOUS CELL CARCINOMA
     Dosage: 10 MG, QW
     Route: 048
     Dates: start: 20101207, end: 20110120

REACTIONS (13)
  - DYSPNOEA [None]
  - SEPSIS [None]
  - CHILLS [None]
  - SPUTUM INCREASED [None]
  - FEELING COLD [None]
  - FEELING HOT [None]
  - HYPERHIDROSIS [None]
  - FEBRILE NEUTROPENIA [None]
  - PYREXIA [None]
  - NEUTROPENIA [None]
  - TACHYCARDIA [None]
  - HYPOTENSION [None]
  - PAIN [None]
